FAERS Safety Report 6222432-1 (Version None)
Quarter: 2009Q2

REPORT INFORMATION
  Report Type: 
  Country: None (occurrence: None)
  Receive Date: 20090608
  Receipt Date: 20090528
  Transmission Date: 20091009
  Serious: Yes (Hospitalization)
  Sender: FDA-Public Use
  Company Number: US-GENENTECH-282798

PATIENT
  Sex: Female
  Weight: 59.864 kg

DRUGS (8)
  1. BEVACIZUMAB [Suspect]
     Indication: NON-SMALL CELL LUNG CANCER
     Dosage: 912 MG, Q3W
     Route: 042
     Dates: start: 20090225
  2. PEMETREXED [Suspect]
     Indication: NON-SMALL CELL LUNG CANCER
     Dosage: 800 MG, Q3W
     Route: 042
     Dates: start: 20090225
  3. CARBOPLATIN [Suspect]
     Indication: NON-SMALL CELL LUNG CANCER
     Dosage: 400 MG, Q3W
     Route: 042
     Dates: start: 20090225
  4. COMPAZINE [Concomitant]
     Indication: DRUG USE FOR UNKNOWN INDICATION
  5. HYDROCHLOROTHIAZIDE [Concomitant]
     Indication: DRUG USE FOR UNKNOWN INDICATION
  6. MAGNESIUM SULFATE [Concomitant]
     Indication: DRUG USE FOR UNKNOWN INDICATION
  7. VASOTEC [Concomitant]
     Indication: DRUG USE FOR UNKNOWN INDICATION
  8. ZOFRAN [Concomitant]
     Indication: DRUG USE FOR UNKNOWN INDICATION

REACTIONS (2)
  - HYPERTENSION [None]
  - HYPONATRAEMIA [None]
